FAERS Safety Report 10503954 (Version 2)
Quarter: 2014Q4

REPORT INFORMATION
  Report Type: Spontaneous
  Country: US (occurrence: US)
  Receive Date: 20141008
  Receipt Date: 20141008
  Transmission Date: 20150528
  Serious: No
  Sender: FDA-Public Use
  Company Number: US-BEH-2011029979

PATIENT
  Age: 4 Year
  Sex: Male
  Weight: 15 kg

DRUGS (29)
  1. CLONIDINE. [Concomitant]
     Active Substance: CLONIDINE
  2. SODIUM CHLORIDE. [Concomitant]
     Active Substance: SODIUM CHLORIDE
  3. EPIPEN [Concomitant]
     Active Substance: EPINEPHRINE
     Indication: PREMEDICATION
  4. CONCERTA [Concomitant]
     Active Substance: METHYLPHENIDATE HYDROCHLORIDE
  5. OMEPRAZOLE. [Concomitant]
     Active Substance: OMEPRAZOLE
  6. PRIVIGEN [Suspect]
     Active Substance: HUMAN IMMUNOGLOBULIN G
     Dosage: 5 G VIALS
     Route: 042
  7. FOCALIN [Concomitant]
     Active Substance: DEXMETHYLPHENIDATE HYDROCHLORIDE
  8. FLOVENT [Concomitant]
     Active Substance: FLUTICASONE PROPIONATE
     Route: 055
  9. DIPHENHYDRAMINE [Concomitant]
     Active Substance: DIPHENHYDRAMINE
     Indication: PREMEDICATION
  10. CHILDRENS TYLENOL [Concomitant]
     Active Substance: ACETAMINOPHEN
  11. PRIVIGEN [Suspect]
     Active Substance: HUMAN IMMUNOGLOBULIN G
     Indication: CONGENITAL HYPOGAMMAGLOBULINAEMIA
     Dosage: 5 GM VIAL;40 ML/HR
     Route: 042
     Dates: start: 20110929
  12. INTUNIV ER 1 [Concomitant]
  13. PRIVIGEN [Suspect]
     Active Substance: HUMAN IMMUNOGLOBULIN G
     Dosage: 5 GM VIAL
     Route: 042
  14. PRIVIGEN [Suspect]
     Active Substance: HUMAN IMMUNOGLOBULIN G
     Route: 042
  15. PRIVIGEN [Suspect]
     Active Substance: HUMAN IMMUNOGLOBULIN G
     Route: 042
  16. PRIVIGEN [Suspect]
     Active Substance: HUMAN IMMUNOGLOBULIN G
     Dosage: MAX. RATE OF 40 ML PER HOUR
     Route: 042
  17. PRIVIGEN [Suspect]
     Active Substance: HUMAN IMMUNOGLOBULIN G
     Route: 042
  18. CHILDRENS MOTRIN [Concomitant]
     Active Substance: IBUPROFEN
  19. FLUTICASONE PROP [Concomitant]
     Route: 045
  20. METHYLPHENIDATE ER [Concomitant]
     Active Substance: METHYLPHENIDATE
  21. TAMIFLU [Concomitant]
     Active Substance: OSELTAMIVIR PHOSPHATE
  22. CEFDINIR. [Concomitant]
     Active Substance: CEFDINIR
  23. SINGULAIR [Concomitant]
     Active Substance: MONTELUKAST SODIUM
  24. PRIVIGEN [Suspect]
     Active Substance: HUMAN IMMUNOGLOBULIN G
     Route: 042
  25. ALBUTEROL. [Concomitant]
     Active Substance: ALBUTEROL
  26. LIDOCAINE/PRILOCAINE [Concomitant]
     Indication: PREMEDICATION
  27. LMX [Concomitant]
     Active Substance: LIDOCAINE
     Indication: PREMEDICATION
  28. CYPROHEPTADINE. [Concomitant]
     Active Substance: CYPROHEPTADINE
  29. PROAIR HFA [Concomitant]
     Active Substance: ALBUTEROL SULFATE
     Route: 055

REACTIONS (9)
  - Streptococcal infection [Unknown]
  - Vomiting [Recovered/Resolved]
  - Upper respiratory tract infection [Unknown]
  - Cough [Recovered/Resolved]
  - Eye infection [Unknown]
  - Influenza [Unknown]
  - Sinusitis [Unknown]
  - Sinusitis [Unknown]
  - Throat tightness [Recovered/Resolved]

NARRATIVE: CASE EVENT DATE: 20110929
